FAERS Safety Report 20085420 (Version 4)
Quarter: 2022Q1

REPORT INFORMATION
  Report Type: Report from Study
  Country: US (occurrence: US)
  Receive Date: 20211118
  Receipt Date: 20220310
  Transmission Date: 20220423
  Serious: No
  Sender: FDA-Public Use
  Company Number: US-NOVARTISTESTPH-NVSC2021US263417

PATIENT
  Sex: Female

DRUGS (2)
  1. COSENTYX [Suspect]
     Active Substance: SECUKINUMAB
     Indication: Psoriasis
     Dosage: 300 MG, QW (300MG Q WEEKLY X 5 WEEKS)
     Route: 058
     Dates: start: 202110
  2. COSENTYX [Suspect]
     Active Substance: SECUKINUMAB
     Dosage: 300 MG, QMO(Q 4 WEEKS)
     Route: 058

REACTIONS (2)
  - Psoriasis [Recovering/Resolving]
  - Skin discolouration [Recovering/Resolving]
